FAERS Safety Report 12723722 (Version 1)
Quarter: 2016Q3

REPORT INFORMATION
  Report Type: Report from Study
  Country: CA (occurrence: CA)
  Receive Date: 20160908
  Receipt Date: 20160908
  Transmission Date: 20161109
  Serious: Yes (Hospitalization)
  Sender: FDA-Public Use
  Company Number: PHHY2013CA105080

PATIENT
  Age: 52 Year
  Sex: Female

DRUGS (5)
  1. SANDOSTATIN [Suspect]
     Active Substance: OCTREOTIDE ACETATE
     Indication: METASTATIC CARCINOID TUMOUR
     Dosage: 100 UG, TID
     Route: 058
     Dates: start: 20130509
  2. SANDOSTATIN LAR DEPOT [Suspect]
     Active Substance: OCTREOTIDE ACETATE
     Dosage: 20 MG, QMO (ONCE A MONTH)
     Route: 030
     Dates: start: 20140311, end: 20150313
  3. SANDOSTATIN LAR DEPOT [Suspect]
     Active Substance: OCTREOTIDE ACETATE
     Dosage: 30 MG, QMO (EVERY 4 WEEKS)
     Route: 030
     Dates: start: 20150410
  4. SANDOSTATIN [Suspect]
     Active Substance: OCTREOTIDE ACETATE
     Dosage: 100 UG, TID
     Route: 058
     Dates: start: 20130905
  5. SANDOSTATIN LAR DEPOT [Suspect]
     Active Substance: OCTREOTIDE ACETATE
     Indication: METASTATIC CARCINOID TUMOUR
     Dosage: 20 MG, QMO (EVERY 4 WEEKS)
     Route: 030
     Dates: start: 20131021, end: 20140211

REACTIONS (12)
  - Confusional state [Unknown]
  - Blood glucose increased [Unknown]
  - Blood pressure increased [Unknown]
  - Hot flush [Unknown]
  - Nasopharyngitis [Unknown]
  - Pyrexia [Unknown]
  - Fatigue [Unknown]
  - Asthenia [Unknown]
  - Injection site discomfort [Unknown]
  - Migraine [Unknown]
  - Influenza [Unknown]
  - Diarrhoea [Recovering/Resolving]

NARRATIVE: CASE EVENT DATE: 201407
